FAERS Safety Report 9354651 (Version 1)
Quarter: 2013Q2

REPORT INFORMATION
  Report Type: Spontaneous
  Country: JP (occurrence: JP)
  Receive Date: 20130618
  Receipt Date: 20130618
  Transmission Date: 20140414
  Serious: Yes (Death)
  Sender: FDA-Public Use
  Company Number: JP-ELI_LILLY_AND_COMPANY-JP201205004843

PATIENT
  Age: 81 Year
  Sex: Female

DRUGS (2)
  1. FORTEO [Suspect]
     Dosage: UNK UNK, QD
     Route: 058
     Dates: start: 20120509
  2. FORTEO [Suspect]
     Dosage: UNK UNK, QD
     Route: 058
     Dates: end: 201211

REACTIONS (9)
  - Death [Fatal]
  - Back pain [Unknown]
  - Bone pain [Unknown]
  - Palpitations [Recovered/Resolved]
  - Malaise [Unknown]
  - Dizziness [Unknown]
  - Chills [Unknown]
  - Pyrexia [Unknown]
  - Nausea [Unknown]
